FAERS Safety Report 7479867 (Version 3)
Quarter: 2012Q4

REPORT INFORMATION
  Report Type: Report from Study
  Country: FR (occurrence: FR)
  Receive Date: 20100716
  Receipt Date: 20120928
  Transmission Date: 20130627
  Serious: Yes (Hospitalization)
  Sender: FDA-Public Use
  Company Number: FR-ABBOTT-10P-056-0656062-01

PATIENT
  Age: 28 Year
  Sex: Female
  Weight: 60 kg

DRUGS (3)
  1. HUMIRA [Suspect]
     Indication: CROHN^S DISEASE
     Dosage: Induction regimen: 80 mg (baseline)/40 mg (week 2)
     Route: 058
     Dates: start: 20090514, end: 20100308
  2. PREDNISONE [Concomitant]
     Indication: CROHN^S DISEASE
  3. AZATHIOPRIN [Concomitant]
     Indication: CROHN^S DISEASE
     Dates: start: 201003

REACTIONS (2)
  - Eczema [Recovered/Resolved]
  - Psoriasis [Recovered/Resolved]
